FAERS Safety Report 18656495 (Version 1)
Quarter: 2020Q4

REPORT INFORMATION
  Report Type: Spontaneous
  Country: BE (occurrence: BE)
  Receive Date: 20201223
  Receipt Date: 20201223
  Transmission Date: 20210114
  Serious: Yes (Other)
  Sender: FDA-Public Use
  Company Number: BE-GLAXOSMITHKLINE-BE2020249542

PATIENT
  Sex: Male

DRUGS (2)
  1. VENTOLIN [Suspect]
     Active Substance: ALBUTEROL SULFATE
     Indication: DYSPNOEA
     Dosage: UNK
  2. RELVAR ELLIPTA [Suspect]
     Active Substance: FLUTICASONE FUROATE\VILANTEROL TRIFENATATE
     Indication: PRODUCT USED FOR UNKNOWN INDICATION

REACTIONS (11)
  - Dyspnoea [Unknown]
  - Cough [Unknown]
  - Hyperglycaemia [Unknown]
  - Candida infection [Unknown]
  - Pollakiuria [Unknown]
  - Blood potassium decreased [Unknown]
  - Secretion discharge [Unknown]
  - Asthmatic crisis [Unknown]
  - Vision blurred [Unknown]
  - Thirst [Unknown]
  - Productive cough [Unknown]
